FAERS Safety Report 9272712 (Version 1)
Quarter: 2013Q2

REPORT INFORMATION
  Report Type: Spontaneous
  Country: CL (occurrence: CL)
  Receive Date: 20130506
  Receipt Date: 20130506
  Transmission Date: 20140414
  Serious: Yes (Other)
  Sender: FDA-Public Use
  Company Number: CL-ASTRAZENECA-2013SE30944

PATIENT
  Sex: Male

DRUGS (6)
  1. BRILINTA [Suspect]
     Route: 048
     Dates: start: 20120601
  2. ATENOLOL [Concomitant]
  3. VYTORIN [Concomitant]
  4. METFORMIN [Concomitant]
  5. AAS [Concomitant]
  6. HEPARON [Concomitant]
     Dosage: 5000 U+ 8000 U
     Route: 042

REACTIONS (1)
  - Drug effect delayed [Recovered/Resolved]
